FAERS Safety Report 4482383-X (Version None)
Quarter: 2004Q4

REPORT INFORMATION
  Report Type: 
  Country: None (occurrence: None)
  Receive Date: 20041022
  Receipt Date: 20031103
  Transmission Date: 20050328
  Serious: No
  Sender: FDA-Public Use
  Company Number: US-BRISTOL-MYERS SQUIBB COMPANY-12425237

PATIENT
  Age: 94 Year
  Sex: Male
  Weight: 56 kg

DRUGS (5)
  1. BUSPAR [Suspect]
     Indication: DEPRESSION
     Dosage: INITIALLY BID, THEN INCREASED TO TID; 1 TAB EVERY AM AND 2 TABS HS.
     Route: 048
     Dates: start: 20031001
  2. KLONOPIN [Concomitant]
  3. HORMONES [Concomitant]
     Dosage: ^HGH^
  4. DHEA [Concomitant]
  5. TESTOSTERONE [Concomitant]
     Dosage: CREAM TO ONE ARM
     Route: 061

REACTIONS (5)
  - BALANCE DISORDER [None]
  - DIFFICULTY IN WALKING [None]
  - DRUG INEFFECTIVE [None]
  - FEELING ABNORMAL [None]
  - STOMACH DISCOMFORT [None]
